FAERS Safety Report 7296552-7 (Version None)
Quarter: 2011Q1

REPORT INFORMATION
  Report Type: 
  Country: None (occurrence: None)
  Receive Date: 20110216
  Receipt Date: 20110204
  Transmission Date: 20110831
  Serious: Yes (Hospitalization)
  Sender: FDA-Public Use
  Company Number: PHHY2011FR09371

PATIENT
  Sex: Female

DRUGS (9)
  1. TRANSIPEG [Concomitant]
  2. COKENZEN [Interacting]
     Dosage: 1 DF DAILY
     Dates: start: 20110105
  3. ZOLPIDEM [Concomitant]
  4. STRUCTUM [Concomitant]
  5. COKENZEN [Interacting]
     Dosage: 1 DF DAILY
     Dates: start: 20050101, end: 20110102
  6. ARIMIDEX [Concomitant]
     Dosage: UNK
     Dates: start: 20110105
  7. ARIMIDEX [Concomitant]
     Dosage: UNK
     Dates: start: 20070101, end: 20110102
  8. VOLTAREN [Suspect]
     Dosage: 1 DF DAILY
     Dates: start: 20101101
  9. DAFALGAN [Concomitant]

REACTIONS (9)
  - DIARRHOEA [None]
  - DEHYDRATION [None]
  - NAUSEA [None]
  - MALAISE [None]
  - HYPOKALAEMIA [None]
  - BLOOD CREATININE INCREASED [None]
  - DECREASED APPETITE [None]
  - BLOOD SODIUM DECREASED [None]
  - RENAL FAILURE [None]
